FAERS Safety Report 5218452-6 (Version None)
Quarter: 2007Q1

REPORT INFORMATION
  Report Type: 
  Country: None (occurrence: None)
  Receive Date: 20061201
  Receipt Date: 20051103
  Transmission Date: 20070707
  Serious: Yes (Other)
  Sender: FDA-Public Use
  Company Number: SUS1-2005-00811

PATIENT

DRUGS (1)
  1. ADDERALL 10 [Suspect]

REACTIONS (1)
  - CEREBROVASCULAR ACCIDENT [None]
